FAERS Safety Report 12769030 (Version 2)
Quarter: 2017Q4

REPORT INFORMATION
  Report Type: Spontaneous
  Country: US (occurrence: US)
  Receive Date: 20160921
  Receipt Date: 20171011
  Transmission Date: 20180320
  Serious: Yes (Other)
  Sender: FDA-Public Use
  Company Number: US-DSJP-DSU-2016-125063

PATIENT

DRUGS (3)
  1. ADVAIR HFA [Suspect]
     Active Substance: FLUTICASONE PROPIONATE\SALMETEROL XINAFOATE
     Dosage: 100/50, BID
  2. PROAIR HFA [Suspect]
     Active Substance: ALBUTEROL SULFATE
  3. AZOR [Suspect]
     Active Substance: AMLODIPINE BESYLATE\OLMESARTAN MEDOXOMIL
     Indication: HYPERTENSION
     Dosage: 5/20 MG, QD
     Dates: start: 2008, end: 201503

REACTIONS (9)
  - Gastritis erosive [Unknown]
  - Hernia [Unknown]
  - Dyspepsia [Unknown]
  - Malabsorption [Recovering/Resolving]
  - Haemorrhoids [Recovering/Resolving]
  - Large intestine polyp [Unknown]
  - Anxiety [Unknown]
  - Diverticulum [Unknown]
  - Depression [Unknown]

NARRATIVE: CASE EVENT DATE: 2013
